FAERS Safety Report 9662510 (Version 1)
Quarter: 2013Q4

REPORT INFORMATION
  Report Type: Spontaneous
  Country: US (occurrence: US)
  Receive Date: 20131031
  Receipt Date: 20131031
  Transmission Date: 20140711
  Serious: No
  Sender: FDA-Public Use
  Company Number: US-PURDUE-USA-2011-0072275

PATIENT
  Age: 43 Year
  Sex: Female

DRUGS (1)
  1. OXYCONTIN (NDA 22-272) [Suspect]
     Indication: PRODUCT USED FOR UNKNOWN INDICATION
     Dosage: 40 MG, BID
     Route: 048
     Dates: start: 201012

REACTIONS (7)
  - Pallor [Unknown]
  - Medication residue present [Unknown]
  - Nausea [Unknown]
  - Lethargy [Unknown]
  - Headache [Unknown]
  - Drug ineffective [Unknown]
  - Drug effect decreased [Unknown]
